FAERS Safety Report 8391263-9 (Version None)
Quarter: 2012Q2

REPORT INFORMATION
  Report Type: 
  Country: None (occurrence: None)
  Receive Date: 20120529
  Receipt Date: 20120528
  Transmission Date: 20120825
  Serious: Yes (Other)
  Sender: FDA-Public Use
  Company Number: ID-BAYER-2012-052114

PATIENT
  Age: 27 Year
  Sex: Female

DRUGS (1)
  1. ULTRAVIST 150 [Suspect]
     Indication: HYSTEROSALPINGECTOMY
     Dosage: 3 ML, UNK

REACTIONS (6)
  - NAUSEA [None]
  - MYALGIA [None]
  - CHILLS [None]
  - HYPOTHERMIA [None]
  - DEPRESSED LEVEL OF CONSCIOUSNESS [None]
  - VOMITING [None]
